FAERS Safety Report 23046155 (Version 1)
Quarter: 2023Q4

REPORT INFORMATION
  Report Type: Spontaneous
  Country: US (occurrence: US)
  Receive Date: 20231009
  Receipt Date: 20231009
  Transmission Date: 20240109
  Serious: No
  Sender: FDA-Public Use
  Company Number: US-HORIZON THERAPEUTICS-HZN-2023-005985

PATIENT

DRUGS (5)
  1. KRYSTEXXA [Suspect]
     Active Substance: PEGLOTICASE
     Indication: Gout
     Dosage: FIRST INFUSION, STARTED APPROXIMATELY 2 TO 3 MONTHS AGO
     Route: 042
     Dates: start: 2023, end: 2023
  2. KRYSTEXXA [Suspect]
     Active Substance: PEGLOTICASE
     Dosage: INFUSION-DISCONTINUED
     Route: 042
     Dates: start: 2023, end: 2023
  3. COLCRYS [Concomitant]
     Active Substance: COLCHICINE
     Dosage: AS NEEDED; STARTED BEFORE KRYSTEXXA THERAPY
     Route: 065
  4. PREDNISONE [Concomitant]
     Active Substance: PREDNISONE
     Dosage: 10 MG A DAY, STARTED BEFORE KRYSTEXXA THERAPY.
     Route: 065
  5. TACROLIMUS [Concomitant]
     Active Substance: TACROLIMUS
     Indication: Kidney transplant rejection
     Dosage: STARTED BEFORE KRYSTEXXA THERAPY. AN
     Route: 065

REACTIONS (1)
  - Drug ineffective [Not Recovered/Not Resolved]

NARRATIVE: CASE EVENT DATE: 20230101
